FAERS Safety Report 23731234 (Version 1)
Quarter: 2024Q2

REPORT INFORMATION
  Report Type: Spontaneous
  Country: US (occurrence: US)
  Receive Date: 20240411
  Receipt Date: 20240411
  Transmission Date: 20240716
  Serious: No
  Sender: FDA-Public Use
  Company Number: US-AMGEN-USASP2024070982

PATIENT
  Age: 54 Year
  Sex: Female

DRUGS (5)
  1. OTEZLA [Suspect]
     Active Substance: APREMILAST
     Indication: Psoriatic arthropathy
     Dosage: 30 MILLIGRAM, BID
     Route: 048
     Dates: start: 20240313
  2. FAMOTIDINE [Concomitant]
     Active Substance: FAMOTIDINE
     Dosage: 40 MILLIGRAM
  3. VITAMINS [Concomitant]
     Active Substance: VITAMINS
  4. TYLENOL [Concomitant]
     Active Substance: ACETAMINOPHEN
     Dosage: 650 MILLIGRAM
  5. ZYRTEC [Concomitant]
     Active Substance: CETIRIZINE HYDROCHLORIDE
     Dosage: 10 MILLIGRAM

REACTIONS (8)
  - Diarrhoea [Unknown]
  - Alopecia [Unknown]
  - Headache [Unknown]
  - Nausea [Unknown]
  - Arthralgia [Unknown]
  - Vomiting [Unknown]
  - Product dose omission issue [Unknown]
  - Pain [Unknown]

NARRATIVE: CASE EVENT DATE: 20240101
